FAERS Safety Report 9294014 (Version 5)
Quarter: 2013Q3

REPORT INFORMATION
  Report Type: Spontaneous
  Country: US (occurrence: None)
  Receive Date: 20121226
  Receipt Date: 20130815
  Transmission Date: 20140515
  Serious: Yes (Death)
  Sender: FDA-Public Use
  Company Number: ADR-2012-02284

PATIENT
  Age: 78 Year
  Sex: Male

DRUGS (2)
  1. LIORESAL [Suspect]
     Indication: MUSCLE SPASTICITY
  2. MORPHINE [Concomitant]

REACTIONS (15)
  - Respiratory disorder [None]
  - Lung infection [None]
  - Overdose [None]
  - Respiratory arrest [None]
  - Coma [None]
  - Clostridium difficile colitis [None]
  - Gait disturbance [None]
  - Erythema [None]
  - Weight decreased [None]
  - Blood blister [None]
  - Cerebrovascular accident [None]
  - Pulmonary fibrosis [None]
  - Erythema [None]
  - Pain in extremity [None]
  - Respiratory arrest [None]
